FAERS Safety Report 25301800 (Version 1)
Quarter: 2025Q2

REPORT INFORMATION
  Report Type: Spontaneous
  Country: US (occurrence: None)
  Receive Date: 20250511
  Receipt Date: 20250511
  Transmission Date: 20250716
  Serious: No
  Sender: FDA-CTU
  Company Number: None

PATIENT
  Age: 73 Year
  Sex: Male
  Weight: 76.05 kg

DRUGS (1)
  1. DOXYCYCLINE HYCLATE [Suspect]
     Active Substance: DOXYCYCLINE HYCLATE
     Indication: Bacterial infection
     Dosage: 1 CAPSULE TWICE A DAY ORAL
     Route: 048

REACTIONS (2)
  - Abdominal discomfort [None]
  - Dysuria [None]

NARRATIVE: CASE EVENT DATE: 20250509
